FAERS Safety Report 4416734-9 (Version None)
Quarter: 2004Q3

REPORT INFORMATION
  Report Type: 
  Country: None (occurrence: None)
  Receive Date: 20040802
  Receipt Date: 20040726
  Transmission Date: 20050211
  Serious: Yes (Life-Threatening, Hospitalization)
  Sender: FDA-Public Use
  Company Number: 2004-118799-NL

PATIENT
  Age: 45 Year
  Sex: Male

DRUGS (7)
  1. DEXAMETHASONE [Suspect]
     Indication: MULTIPLE MYELOMA
     Dosage: DF
     Route: 048
     Dates: start: 20040406, end: 20040627
  2. THALIDOMIDE [Suspect]
     Indication: MULTIPLE MYELOMA
     Dosage: 100 MG
     Route: 048
     Dates: start: 20040406, end: 20040627
  3. FRUSEMIDE [Concomitant]
  4. ASPIRIN [Concomitant]
  5. OYCODONE [Concomitant]
  6. GABAPENTIN [Concomitant]
  7. CYCLOPHOSPHAMIDE [Concomitant]

REACTIONS (3)
  - DEEP VEIN THROMBOSIS [None]
  - PHLEBOTHROMBOSIS [None]
  - PULMONARY EMBOLISM [None]
